FAERS Safety Report 12382281 (Version 1)
Quarter: 2016Q2

REPORT INFORMATION
  Report Type: Spontaneous
  Country: US (occurrence: US)
  Receive Date: 20160518
  Receipt Date: 20160518
  Transmission Date: 20160815
  Serious: Yes (Other)
  Sender: FDA-Public Use
  Company Number: US-BAYER-2016-093437

PATIENT
  Age: 53 Year
  Sex: Male

DRUGS (1)
  1. EOVIST [Suspect]
     Active Substance: GADOXETATE DISODIUM
     Indication: NUCLEAR MAGNETIC RESONANCE IMAGING LIVER
     Dosage: 10 ML, ONCE
     Route: 042
     Dates: start: 20160512, end: 20160512

REACTIONS (4)
  - Ocular hyperaemia [None]
  - Swelling face [None]
  - Mouth swelling [None]
  - Rash [None]

NARRATIVE: CASE EVENT DATE: 20160512
